FAERS Safety Report 5497338-6 (Version None)
Quarter: 2007Q4

REPORT INFORMATION
  Report Type: 
  Country: None (occurrence: None)
  Receive Date: 20071025
  Receipt Date: 20061004
  Transmission Date: 20080405
  Serious: No
  Sender: FDA-Public Use
  Company Number: A0622470A

PATIENT
  Age: 55 Year
  Sex: Male

DRUGS (5)
  1. ADVAIR DISKUS 100/50 [Suspect]
     Indication: ASTHMA
     Dosage: 1PUFF TWICE PER DAY
     Route: 055
     Dates: start: 20061004
  2. BLOOD PRESSURE MEDICATION [Concomitant]
  3. ANTIDEPRESSANT [Concomitant]
  4. VITAMINS [Concomitant]
  5. NEXIUM [Concomitant]

REACTIONS (3)
  - OVERDOSE [None]
  - PALPITATIONS [None]
  - PSYCHOMOTOR HYPERACTIVITY [None]
